FAERS Safety Report 6511734-7 (Version None)
Quarter: 2009Q4

REPORT INFORMATION
  Report Type: 
  Country: None (occurrence: None)
  Receive Date: 20091222
  Receipt Date: 20090401
  Transmission Date: 20100525
  Serious: No
  Sender: FDA-Public Use
  Company Number: US-ASTRAZENECA-2009UW08147

PATIENT
  Age: 49 Year
  Sex: Female
  Weight: 112.9 kg

DRUGS (11)
  1. CRESTOR [Suspect]
     Route: 048
  2. NASONEX [Concomitant]
     Indication: MULTIPLE ALLERGIES
  3. FISH OIL [Concomitant]
  4. HYDROCHLOROTHIAZIDE [Concomitant]
     Indication: OEDEMA PERIPHERAL
  5. XANAX [Concomitant]
     Indication: ANXIETY
  6. TESSALON [Concomitant]
     Indication: COUGH
  7. ASPIRIN [Concomitant]
  8. ALLEGRA [Concomitant]
  9. PREVACID [Concomitant]
     Indication: DYSPEPSIA
  10. ALBUTEROL [Concomitant]
  11. STOOL SOFTNER [Concomitant]

REACTIONS (1)
  - MUSCLE SPASMS [None]
